FAERS Safety Report 8018207-3 (Version None)
Quarter: 2011Q4

REPORT INFORMATION
  Report Type: 
  Country: None (occurrence: None)
  Receive Date: 20111228
  Receipt Date: 20111214
  Transmission Date: 20120403
  Serious: Yes (Hospitalization)
  Sender: FDA-Public Use
  Company Number: 1000024525

PATIENT
  Age: 63 Year
  Sex: Male

DRUGS (5)
  1. TETRAMIDE (MIANSERIN HYDROCHLORIDE) (MIANSERIN HYDROCHLORIDE) [Concomitant]
  2. PURSENNID (SENNOSIDE A+B) (SENNOSIDE A+B) [Concomitant]
  3. MEMANTINE HYDROCHLORIDE [Suspect]
     Indication: DEMENTIA ALZHEIMER'S TYPE
     Dosage: 5 MG (5 MG, 1 IN 1 D), ORAL
     Route: 048
     Dates: start: 20110705, end: 20110713
  4. ARICEPT [Concomitant]
  5. SULPIRIDE (SULPIRIDE) (SULPIRIDE) [Concomitant]

REACTIONS (7)
  - NASOPHARYNGITIS [None]
  - DEPRESSED LEVEL OF CONSCIOUSNESS [None]
  - EYE MOVEMENT DISORDER [None]
  - PYREXIA [None]
  - APATHY [None]
  - DECREASED APPETITE [None]
  - GUILLAIN-BARRE SYNDROME [None]
